FAERS Safety Report 8319417-8 (Version None)
Quarter: 2012Q2

REPORT INFORMATION
  Report Type: 
  Country: None (occurrence: None)
  Receive Date: 20120427
  Receipt Date: 20120406
  Transmission Date: 20120825
  Serious: Yes (Death)
  Sender: FDA-Public Use
  Company Number: PHHY2012JP021739

PATIENT
  Age: 64 Year
  Sex: Male
  Weight: 48 kg

DRUGS (11)
  1. FLUOROQUINOLONES [Concomitant]
     Dosage: UNK UKN, UNK
  2. MYCOPHENOLATE MOFETIL [Suspect]
     Indication: CORD BLOOD TRANSPLANT THERAPY
     Dosage: 15 MG/KG, UNK
  3. LIDOCAINE [Concomitant]
     Dosage: 1 %, UNK
  4. FLUDARABINE PHOSPHATE [Concomitant]
     Dosage: 40 MG/M2, FOR 5 DAYS (DAY -6 TO DAY -2)
  5. ACYCLOVIR [Concomitant]
     Dosage: 200 MG/DAY
  6. HYDROXYZINE [Concomitant]
  7. NEORAL [Suspect]
     Indication: CORD BLOOD TRANSPLANT THERAPY
     Dosage: 3 MG/KG, ON DAY -3 WITH TARGET SERUM CONCENTRATION OF 250 TO 450 NG/ML
  8. GRANULOCYTE COLONY STIMULATING FACTOR [Concomitant]
     Dosage: 300 MG/M2, UNK
  9. HYDROCORTISONE [Concomitant]
  10. IRRADIATION [Concomitant]
     Dosage: 3 GY, UNK
  11. ACYCLOVIR [Concomitant]
     Dosage: 1000 MG/DAY FOR 5 WEEKS

REACTIONS (3)
  - ACUTE GRAFT VERSUS HOST DISEASE IN SKIN [None]
  - STAPHYLOCOCCAL SEPSIS [None]
  - ACUTE GRAFT VERSUS HOST DISEASE IN INTESTINE [None]
